FAERS Safety Report 8924171 (Version 1)
Quarter: 2012Q4

REPORT INFORMATION
  Report Type: 
  Country: US (occurrence: US)
  Receive Date: 20121126
  Receipt Date: 20121126
  Transmission Date: 20130627
  Serious: No
  Sender: FDA-Public Use
  Company Number: US-MYLANLABS-2012S1021057

PATIENT
  Age: 62 Year
  Sex: Female

DRUGS (2)
  1. VALACYCLOVIR [Suspect]
     Route: 048
     Dates: start: 2010, end: 2010
  2. PLAVIX [Concomitant]

REACTIONS (2)
  - Drug ineffective [Recovered/Resolved]
  - Herpes virus infection [Recovered/Resolved]
